FAERS Safety Report 8154976-X (Version None)
Quarter: 2012Q1

REPORT INFORMATION
  Report Type: 
  Country: None (occurrence: None)
  Receive Date: 20120221
  Receipt Date: 20120208
  Transmission Date: 20120608
  Serious: Yes (Life-Threatening, Disabling)
  Sender: FDA-Public Use
  Company Number: JP-GE HEALTHCARE MEDICAL DIAGNOSTICS-MSTR-NO-1112S-0274

PATIENT
  Age: 59 Year
  Sex: Female

DRUGS (6)
  1. ZOMETA [Concomitant]
     Dates: start: 20090114
  2. METASTRON [Suspect]
     Indication: METASTATIC PAIN
     Route: 042
     Dates: start: 20111110, end: 20111110
  3. METASTRON [Suspect]
     Indication: THERAPEUTIC PROCEDURE
  4. LOXOPROFEN SODIUM HYDRATE [Concomitant]
     Dates: start: 20080601
  5. DOCETAXEL [Concomitant]
     Dates: start: 20111206
  6. CAPECITABINE [Concomitant]
     Dates: start: 20111125, end: 20111202

REACTIONS (2)
  - WHITE BLOOD CELL COUNT DECREASED [None]
  - DISSEMINATED INTRAVASCULAR COAGULATION [None]
